FAERS Safety Report 7972992 (Version 3)
Quarter: 2014Q1

REPORT INFORMATION
  Report Type: Spontaneous
  Country: US (occurrence: US)
  Receive Date: 20110603
  Receipt Date: 20140123
  Transmission Date: 20141002
  Serious: Yes (Other)
  Sender: FDA-Public Use
  Company Number: US-JNJFOC-20110512746

PATIENT
  Age: 57 Year
  Sex: Male
  Weight: 86.18 kg

DRUGS (12)
  1. DURAGESIC [Suspect]
     Indication: INTERVERTEBRAL DISC DEGENERATION
     Route: 062
     Dates: start: 20010501, end: 2005
  2. DURAGESIC [Suspect]
     Indication: INTERVERTEBRAL DISC DEGENERATION
     Route: 062
     Dates: start: 20110607
  3. DURAGESIC [Suspect]
     Indication: INTERVERTEBRAL DISC DEGENERATION
     Route: 062
     Dates: start: 2002, end: 2011
  4. SANDOZ FENTANYL TRANSDERMAL SYSTEM [Suspect]
     Indication: INTERVERTEBRAL DISC DEGENERATION
     Route: 062
     Dates: start: 2005, end: 20110607
  5. DURAGESIC [Suspect]
     Indication: INTERVERTEBRAL DISC DEGENERATION
     Route: 062
  6. FENTANYL TRANSDERMAL SYSTEM [Concomitant]
     Indication: INTERVERTEBRAL DISC DEGENERATION
     Route: 062
     Dates: start: 2010
  7. OXYCODONE [Concomitant]
     Indication: ANALGESIC THERAPY
     Dosage: AS NEEDED
     Route: 048
     Dates: start: 2002
  8. MELOXICAM [Concomitant]
     Indication: INFLAMMATION
     Dosage: AS NEEDED
     Route: 048
     Dates: start: 2002
  9. ASPIRIN [Concomitant]
     Indication: PLATELET TRANSFUSION
     Dosage: AS NEEDED
     Route: 048
     Dates: start: 1991
  10. MORPHINE SULFATE [Concomitant]
     Indication: PAIN
     Route: 048
  11. AMBIEN [Concomitant]
     Indication: SLEEP DISORDER
     Route: 048
  12. FLURAZEPAM [Concomitant]
     Indication: SLEEP DISORDER
     Dosage: AT BED TIME
     Route: 048
     Dates: start: 2007

REACTIONS (5)
  - Lymphoma [Recovered/Resolved]
  - Anxiety [Not Recovered/Not Resolved]
  - Drug dose omission [Not Recovered/Not Resolved]
  - Drug ineffective [Not Recovered/Not Resolved]
  - Overdose [Not Recovered/Not Resolved]
